FAERS Safety Report 16467025 (Version 1)
Quarter: 2019Q2

REPORT INFORMATION
  Report Type: Spontaneous
  Country: US (occurrence: US)
  Receive Date: 20190624
  Receipt Date: 20190624
  Transmission Date: 20190711
  Serious: No
  Sender: FDA-Public Use
  Company Number: US-LUPIN PHARMACEUTICALS INC.-2019-00554

PATIENT
  Age: 77 Year
  Sex: Female

DRUGS (1)
  1. VANCOMYCIN HYDROCHLORIDE CAPSULES USP 125 MG [Suspect]
     Active Substance: VANCOMYCIN HYDROCHLORIDE
     Indication: INFECTION
     Dosage: 125 MG, QID
     Route: 048
     Dates: start: 20190118

REACTIONS (4)
  - Onychoclasis [Not Recovered/Not Resolved]
  - Limb injury [Not Recovered/Not Resolved]
  - Product dose omission [Unknown]
  - Product packaging difficult to open [Unknown]

NARRATIVE: CASE EVENT DATE: 20190118
